FAERS Safety Report 10777476 (Version 1)
Quarter: 2015Q1

REPORT INFORMATION
  Report Type: Spontaneous
  Country: US (occurrence: US)
  Receive Date: 20150209
  Receipt Date: 20150209
  Transmission Date: 20150721
  Serious: No
  Sender: FDA-Public Use
  Company Number: US-009507513-1502USA001697

PATIENT
  Age: 16 Year
  Sex: Male
  Weight: 61.22 kg

DRUGS (1)
  1. CLARITIN [Suspect]
     Active Substance: LORATADINE
     Indication: HYPERSENSITIVITY
     Dosage: 20 MG, QD
     Route: 048
     Dates: start: 20150129

REACTIONS (4)
  - Overdose [Unknown]
  - Headache [Recovered/Resolved]
  - Inappropriate schedule of drug administration [Unknown]
  - Abdominal pain upper [Not Recovered/Not Resolved]

NARRATIVE: CASE EVENT DATE: 20150129
